FAERS Safety Report 4341961-9 (Version None)
Quarter: 2004Q2

REPORT INFORMATION
  Report Type: 
  Country: None (occurrence: None)
  Receive Date: 20040415
  Receipt Date: 20040330
  Transmission Date: 20050107
  Serious: Yes (Death)
  Sender: FDA-Public Use
  Company Number: USA040361860

PATIENT
  Age: 87 Year
  Sex: Female
  Weight: 36 kg

DRUGS (8)
  1. FORTEO [Suspect]
     Indication: OSTEOPOROSIS
     Dosage: 20 UG/1 DAY
     Dates: start: 20040115, end: 20040214
  2. LASIX [Concomitant]
  3. COUMADIN [Concomitant]
  4. LIPITOR [Concomitant]
  5. KCL (POTASSIUM CHLORIDE) [Concomitant]
  6. BETAPACE [Concomitant]
  7. DIOVAN [Concomitant]
  8. MULTI-VITAMINS [Concomitant]

REACTIONS (3)
  - CACHEXIA [None]
  - MARKEDLY REDUCED DIETARY INTAKE [None]
  - MENTAL IMPAIRMENT [None]
